FAERS Safety Report 5659399-0 (Version None)
Quarter: 2008Q1

REPORT INFORMATION
  Report Type: 
  Country: None (occurrence: None)
  Receive Date: 20080307
  Receipt Date: 20080307
  Transmission Date: 20080703
  Serious: Yes (Other)
  Sender: FDA-Public Use
  Company Number: None

PATIENT
  Sex: Female
  Weight: 74.8435 kg

DRUGS (2)
  1. SPIRIVA [Suspect]
     Indication: EYE IRRITATION
     Dosage: 1 DOSE A DAY
     Dates: start: 20070101, end: 20080101
  2. PATADAY 1% [Concomitant]

REACTIONS (2)
  - EYE PAIN [None]
  - EYE SWELLING [None]
